FAERS Safety Report 5169535-0 (Version None)
Quarter: 2006Q4

REPORT INFORMATION
  Report Type: 
  Country: None (occurrence: None)
  Receive Date: 20061204
  Receipt Date: 20061121
  Transmission Date: 20070319
  Serious: Yes (Other)
  Sender: FDA-Public Use
  Company Number: 2006US002699

PATIENT
  Sex: Male

DRUGS (4)
  1. VESICARE [Suspect]
     Indication: DRUG USE FOR UNKNOWN INDICATION
  2. KEPPRA [Concomitant]
  3. LAMICTAL [Concomitant]
  4. TEGRETOL [Concomitant]

REACTIONS (2)
  - CONVULSION [None]
  - INSOMNIA [None]
